FAERS Safety Report 24132624 (Version 2)
Quarter: 2024Q3

REPORT INFORMATION
  Report Type: Report from Study
  Country: US (occurrence: US)
  Receive Date: 20240724
  Receipt Date: 20240813
  Transmission Date: 20241017
  Serious: Yes (Other)
  Sender: ABBVIE
  Company Number: US-ABBVIE-5847736

PATIENT
  Sex: Male

DRUGS (1)
  1. VENCLEXTA [Suspect]
     Active Substance: VENETOCLAX
     Indication: Anaemia
     Route: 048
     Dates: start: 202407

REACTIONS (7)
  - Transfusion [Unknown]
  - Gastric operation [Unknown]
  - Weight decreased [Unknown]
  - Dehydration [Unknown]
  - Fatigue [Unknown]
  - Blood pressure abnormal [Unknown]
  - Incision site pain [Unknown]

NARRATIVE: CASE EVENT DATE: 20240101
